FAERS Safety Report 26196024 (Version 1)
Quarter: 2025Q4

REPORT INFORMATION
  Report Type: Spontaneous
  Country: US (occurrence: US)
  Receive Date: 20251224
  Receipt Date: 20251224
  Transmission Date: 20260119
  Serious: Yes (Hospitalization)
  Sender: AMGEN
  Company Number: US-AMGEN-USASP2025250302

PATIENT
  Age: 82 Year
  Sex: Male

DRUGS (1)
  1. REPATHA [Suspect]
     Active Substance: EVOLOCUMAB
     Indication: Product used for unknown indication
     Dosage: 140 MILLIGRAM, Q2WK
     Route: 065

REACTIONS (7)
  - Myocardial infarction [Unknown]
  - Transfusion [Unknown]
  - Urinary tract operation [Unknown]
  - Epistaxis [Unknown]
  - Malaise [Unknown]
  - Illness [Unknown]
  - Hearing aid user [Unknown]

NARRATIVE: CASE EVENT DATE: 20251125
